FAERS Safety Report 16736715 (Version 2)
Quarter: 2019Q4

REPORT INFORMATION
  Report Type: Spontaneous
  Country: CZ (occurrence: CZ)
  Receive Date: 20190823
  Receipt Date: 20191011
  Transmission Date: 20200122
  Serious: Yes (Death, Life-Threatening, Disabling, Other)
  Sender: FDA-Public Use
  Company Number: CZ-BRISTOL-MYERS SQUIBB COMPANY-BMS-2019-082227

PATIENT
  Age: 60 Year
  Sex: Male

DRUGS (2)
  1. OPDIVO [Suspect]
     Active Substance: NIVOLUMAB
     Indication: PRODUCT USED FOR UNKNOWN INDICATION
     Dosage: 40 MILLIGRAM, 14 DAY CYCLE(2 SERIES OF CHEMOTHERAPY IN A 14-DAY CYCLE. EVERY SERIES CONTAINED 240MG
     Route: 042
     Dates: start: 20190619, end: 20190703
  2. OPDIVO [Suspect]
     Active Substance: NIVOLUMAB
     Indication: RENAL CANCER
     Dosage: 200 MILLIGRAM, 14 DAY CYCLE(2 SERIES OF CHEMOTHERAPY IN A 14-DAY CYCLE. EVERY SERIES CONTAINED 240MG
     Route: 042
     Dates: start: 20190619, end: 20190703

REACTIONS (4)
  - Arteriosclerosis coronary artery [Fatal]
  - Condition aggravated [Fatal]
  - Malignant neoplasm progression [Fatal]
  - Hepatic enzyme increased [Unknown]

NARRATIVE: CASE EVENT DATE: 201907
